FAERS Safety Report 4313687-9 (Version None)
Quarter: 2004Q1

REPORT INFORMATION
  Report Type: 
  Country: None (occurrence: None)
  Receive Date: 20040305
  Receipt Date: 20040301
  Transmission Date: 20041129
  Serious: Yes (Other)
  Sender: FDA-Public Use
  Company Number: 2004201479US

PATIENT
  Sex: Female

DRUGS (2)
  1. CELEBREX [Suspect]
  2. MULTIPLE MEDICATIONS ( ) [Suspect]

REACTIONS (2)
  - COMA [None]
  - SURGERY [None]
